FAERS Safety Report 5442150-7 (Version None)
Quarter: 2007Q3

REPORT INFORMATION
  Report Type: 
  Country: None (occurrence: None)
  Receive Date: 20070904
  Receipt Date: 20070821
  Transmission Date: 20080115
  Serious: Yes (Other)
  Sender: FDA-Public Use
  Company Number: GB-ELI_LILLY_AND_COMPANY-GB200708006733

PATIENT
  Age: 38 Year
  Sex: Male

DRUGS (7)
  1. FLUOXETINE [Suspect]
     Indication: SYSTEMIC SCLEROSIS
  2. LOSARTAN POTASSIUM [Concomitant]
     Indication: SYSTEMIC SCLEROSIS
  3. ILOPROST [Concomitant]
     Indication: SYSTEMIC SCLEROSIS
  4. NIFEDIPINE [Concomitant]
     Indication: SYSTEMIC SCLEROSIS
  5. CLOPIDOGREL [Concomitant]
     Indication: SYSTEMIC SCLEROSIS
  6. LANSOPRAZOLE [Concomitant]
     Indication: SYSTEMIC SCLEROSIS
  7. BLOOD TRANSFUSION, AUXILIARY PRODUCTS [Concomitant]
     Indication: SYSTEMIC SCLEROSIS
     Dosage: 20 U, UNK

REACTIONS (3)
  - ANAEMIA [None]
  - GANGRENE [None]
  - SYSTEMIC SCLEROSIS [None]
